FAERS Safety Report 22336984 (Version 1)
Quarter: 2023Q2

REPORT INFORMATION
  Report Type: Spontaneous
  Country: US (occurrence: None)
  Receive Date: 20230517
  Receipt Date: 20230517
  Transmission Date: 20230721
  Serious: No
  Sender: FDA-Public Use
  Company Number: None

PATIENT
  Age: 49 Year
  Sex: Female
  Weight: 67.5 kg

DRUGS (5)
  1. FLONASE SENSIMIST ALLERGY RELIEF [Suspect]
     Active Substance: FLUTICASONE FUROATE
     Indication: Sinus congestion
     Dosage: OTHER QUANTITY : 1 SPRAY(S);?OTHER ROUTE : NASAL SPRAY;?
     Route: 050
     Dates: start: 20150401, end: 20230517
  2. FLONASE SENSIMIST ALLERGY RELIEF [Suspect]
     Active Substance: FLUTICASONE FUROATE
     Indication: Sinusitis
  3. FLUOXETINE [Concomitant]
     Active Substance: FLUOXETINE HYDROCHLORIDE
  4. Centrum Adults Multivitamin [Concomitant]
  5. Citracal Calcium Supplement (^slow release 1200^) [Concomitant]

REACTIONS (7)
  - Anxiety [None]
  - Heart rate increased [None]
  - Disturbance in attention [None]
  - Tension [None]
  - Sleep disorder [None]
  - Dacryostenosis acquired [None]
  - Dacryocanaliculitis [None]

NARRATIVE: CASE EVENT DATE: 20230201
